FAERS Safety Report 22221426 (Version 1)
Quarter: 2023Q2

REPORT INFORMATION
  Report Type: Spontaneous
  Country: NL (occurrence: NL)
  Receive Date: 20230418
  Receipt Date: 20230418
  Transmission Date: 20230722
  Serious: Yes (Life-Threatening)
  Sender: FDA-Public Use
  Company Number: None

PATIENT
  Sex: Female
  Weight: 80 kg

DRUGS (1)
  1. ISOSORBIDE MONONITRATE [Suspect]
     Active Substance: ISOSORBIDE MONONITRATE
     Indication: Chest pain
     Dosage: 30 MILLIGRAM DAILY; ISOSORBIDE MONONITRATE TABLET MGA 30MG / BRAND NAME NOT SPECIFIED
     Route: 065
     Dates: start: 20230207, end: 20230324

REACTIONS (1)
  - Loss of consciousness [Recovered/Resolved]
